FAERS Safety Report 6548454-9 (Version None)
Quarter: 2010Q1

REPORT INFORMATION
  Report Type: 
  Country: None (occurrence: None)
  Receive Date: 20100124
  Receipt Date: 20090625
  Transmission Date: 20100710
  Serious: No
  Sender: FDA-Public Use
  Company Number: US-ALLERGAN-0908985US

PATIENT
  Age: 51 Year
  Sex: Female

DRUGS (8)
  1. RESTASIS [Suspect]
     Indication: RHEUMATOID ARTHRITIS
     Dosage: 1 GTT, BID
     Route: 047
     Dates: start: 20090101, end: 20090616
  2. RESTASIS [Suspect]
     Indication: DRY EYE
  3. TOPROL-XL [Concomitant]
     Indication: BLOOD PRESSURE
     Dosage: 25 MG, UNK
  4. NAPHCOM [Concomitant]
  5. ELESTAT [Concomitant]
  6. VIT D [Concomitant]
  7. AZITHROMYCIN [Concomitant]
  8. ACIPHEX [Concomitant]
     Indication: GASTROOESOPHAGEAL REFLUX DISEASE

REACTIONS (2)
  - EYE IRRITATION [None]
  - VISION BLURRED [None]
